FAERS Safety Report 5642045-X (Version None)
Quarter: 2008Q1

REPORT INFORMATION
  Report Type: 
  Country: None (occurrence: None)
  Receive Date: 20080225
  Receipt Date: 20080208
  Transmission Date: 20080703
  Serious: Yes (Hospitalization)
  Sender: FDA-Public Use
  Company Number: DSA_31456_2008

PATIENT
  Sex: Female

DRUGS (10)
  1. LORAZEPAM [Suspect]
     Indication: DRUG USE FOR UNKNOWN INDICATION
     Dosage: (4 MG QD ORAL), (2 MG QD ORAL), (1.5 MG QD ORAL)
     Route: 048
     Dates: start: 20071215, end: 20071219
  2. LORAZEPAM [Suspect]
     Indication: DRUG USE FOR UNKNOWN INDICATION
     Dosage: (4 MG QD ORAL), (2 MG QD ORAL), (1.5 MG QD ORAL)
     Route: 048
     Dates: start: 20071220, end: 20071228
  3. LORAZEPAM [Suspect]
     Indication: DRUG USE FOR UNKNOWN INDICATION
     Dosage: (4 MG QD ORAL), (2 MG QD ORAL), (1.5 MG QD ORAL)
     Route: 048
     Dates: start: 20071229, end: 20080102
  4. HALDOL [Suspect]
     Indication: DRUG USE FOR UNKNOWN INDICATION
     Dosage: (10 MG QD ORAL), (20 MG QD ORAL), (10 MG QD ORAL), (5 MG QD ORAL), (4 MG QD ORAL), (2 MG QD ORAL)
     Route: 048
     Dates: start: 20071210, end: 20071214
  5. HALDOL [Suspect]
     Indication: DRUG USE FOR UNKNOWN INDICATION
     Dosage: (10 MG QD ORAL), (20 MG QD ORAL), (10 MG QD ORAL), (5 MG QD ORAL), (4 MG QD ORAL), (2 MG QD ORAL)
     Route: 048
     Dates: start: 20071215, end: 20071219
  6. HALDOL [Suspect]
     Indication: DRUG USE FOR UNKNOWN INDICATION
     Dosage: (10 MG QD ORAL), (20 MG QD ORAL), (10 MG QD ORAL), (5 MG QD ORAL), (4 MG QD ORAL), (2 MG QD ORAL)
     Route: 048
     Dates: start: 20071220, end: 20071227
  7. HALDOL [Suspect]
     Indication: DRUG USE FOR UNKNOWN INDICATION
     Dosage: (10 MG QD ORAL), (20 MG QD ORAL), (10 MG QD ORAL), (5 MG QD ORAL), (4 MG QD ORAL), (2 MG QD ORAL)
     Route: 048
     Dates: start: 20071228, end: 20080106
  8. HALDOL [Suspect]
     Indication: DRUG USE FOR UNKNOWN INDICATION
     Dosage: (10 MG QD ORAL), (20 MG QD ORAL), (10 MG QD ORAL), (5 MG QD ORAL), (4 MG QD ORAL), (2 MG QD ORAL)
     Route: 048
     Dates: start: 20080107, end: 20080108
  9. HALDOL [Suspect]
     Indication: DRUG USE FOR UNKNOWN INDICATION
     Dosage: (10 MG QD ORAL), (20 MG QD ORAL), (10 MG QD ORAL), (5 MG QD ORAL), (4 MG QD ORAL), (2 MG QD ORAL)
     Route: 048
     Dates: start: 20080109
  10. LORAZEPAM [Suspect]
     Indication: DRUG USE FOR UNKNOWN INDICATION
     Dosage: (4 MG QD (INJECTION) INTRAVENOUS (NOT OTHERWISE SPECIFIED)
     Route: 042
     Dates: start: 20071210, end: 20071214

REACTIONS (4)
  - HYPOTENSION [None]
  - MALAISE [None]
  - SINUS BRADYCARDIA [None]
  - VERTIGO [None]
